FAERS Safety Report 9248196 (Version 2)
Quarter: 2014Q1

REPORT INFORMATION
  Report Type: Spontaneous
  Country: US (occurrence: None)
  Receive Date: 20130305
  Receipt Date: 20140306
  Transmission Date: 20141002
  Serious: Yes (Other)
  Sender: FDA-Public Use
  Company Number: 163-21880-12100900

PATIENT
  Age: 73 Year
  Sex: Male
  Weight: 86.18 kg

DRUGS (3)
  1. REVLIMID (LENALIDOMIDE) [Suspect]
     Indication: PLASMA CELL MYELOMA
     Dosage: 21 IN 21 D
     Route: 048
     Dates: start: 20110404, end: 20111004
  2. ZOMETA (ZOLEDRONIC ACID) [Suspect]
  3. VELCADE (BORTEZOMIB) [Concomitant]

REACTIONS (1)
  - Pancytopenia [None]
